FAERS Safety Report 4727509-5 (Version None)
Quarter: 2005Q3

REPORT INFORMATION
  Report Type: 
  Country: None (occurrence: None)
  Receive Date: 20050727
  Receipt Date: 20050727
  Transmission Date: 20060218
  Serious: Yes (Hospitalization)
  Sender: FDA-Public Use
  Company Number: None

PATIENT
  Age: 60 Year
  Sex: Female

DRUGS (15)
  1. TARCEVA [Suspect]
     Indication: BREAST CANCER
     Dosage: 150MG PO DAILY
     Route: 048
  2. LETROZOLE [Suspect]
     Indication: BREAST CANCER
     Dosage: 2.5 MG PO DAILY
     Route: 048
  3. METFORMIN [Concomitant]
  4. AMARYL [Concomitant]
  5. SYNTHROID [Concomitant]
  6. CLONIDINE [Concomitant]
  7. ACEON [Concomitant]
  8. M.V.I. [Concomitant]
  9. VIT E [Concomitant]
  10. IRON [Concomitant]
  11. MAG OXIDE [Concomitant]
  12. VIT A [Concomitant]
  13. ASPIRIN [Concomitant]
  14. HYDROCHLOROTHIAZIDE [Concomitant]
  15. OSCAL [Concomitant]

REACTIONS (2)
  - BLOOD PRESSURE INCREASED [None]
  - HEADACHE [None]
